FAERS Safety Report 8034551-8 (Version None)
Quarter: 2012Q1

REPORT INFORMATION
  Report Type: 
  Country: None (occurrence: None)
  Receive Date: 20120110
  Receipt Date: 20120106
  Transmission Date: 20120608
  Serious: Yes (Other)
  Sender: FDA-Public Use
  Company Number: IT-ABBOTT-12P-083-0889317-00

PATIENT
  Age: 31 Year
  Sex: Female

DRUGS (1)
  1. ENANTONE 11.25 MG [Suspect]
     Indication: OESTRADIOL INCREASED
     Route: 058
     Dates: start: 20090101

REACTIONS (1)
  - POLYCYSTIC OVARIES [None]
